FAERS Safety Report 25274334 (Version 7)
Quarter: 2025Q3

REPORT INFORMATION
  Report Type: Spontaneous
  Country: CO (occurrence: CO)
  Receive Date: 20250506
  Receipt Date: 20250820
  Transmission Date: 20251021
  Serious: Yes (Other)
  Sender: SANDOZ
  Company Number: CO-002147023-NVSC2025CO072130

PATIENT
  Age: 62 Year
  Sex: Female
  Weight: 57 kg

DRUGS (15)
  1. FEMARA [Suspect]
     Active Substance: LETROZOLE
     Indication: Hormone receptor positive HER2 negative breast cancer
     Route: 048
     Dates: start: 20240824, end: 202410
  2. FEMARA [Suspect]
     Active Substance: LETROZOLE
     Indication: Breast cancer
  3. FULVESTRANT [Suspect]
     Active Substance: FULVESTRANT
     Indication: Breast cancer
     Dosage: 250 MG, Q3W (EVERY 21 DAYS)
     Route: 065
     Dates: start: 20241121
  4. FULVESTRANT [Suspect]
     Active Substance: FULVESTRANT
     Dosage: 250 MG, Q3W (EVERY 21 DAYS)
     Route: 065
     Dates: start: 202502
  5. FULVESTRANT [Suspect]
     Active Substance: FULVESTRANT
     Route: 030
     Dates: start: 20241201
  6. FULVESTRANT [Suspect]
     Active Substance: FULVESTRANT
     Route: 065
     Dates: end: 202507
  7. KISQALI [Suspect]
     Active Substance: RIBOCICLIB SUCCINATE
     Dosage: 400 MG, QD
     Route: 048
     Dates: start: 202506
  8. KISQALI [Suspect]
     Active Substance: RIBOCICLIB SUCCINATE
     Dosage: 400 MG, QD
     Route: 048
     Dates: start: 20250730
  9. KISQALI [Suspect]
     Active Substance: RIBOCICLIB SUCCINATE
     Indication: Breast cancer metastatic
     Dosage: 2 (200 MG TABLETS) (400 MG), DAILY FOR 21  DAYS AND EIGHT DAYS OFF
     Route: 048
     Dates: start: 202505
  10. KISQALI [Suspect]
     Active Substance: RIBOCICLIB SUCCINATE
     Indication: Breast cancer
     Dosage: 3 (200 MG TABLETS) (600 MG), QD
     Route: 048
     Dates: start: 20241201, end: 202505
  11. KISQALI [Suspect]
     Active Substance: RIBOCICLIB SUCCINATE
     Indication: Hormone receptor positive HER2 negative breast cancer
     Dosage: 600 MG, QD
     Route: 048
     Dates: start: 20241130
  12. CALCIUM [Concomitant]
     Active Substance: CALCIUM
     Indication: Product used for unknown indication
     Route: 065
  13. OMEPRAZOLE [Concomitant]
     Active Substance: OMEPRAZOLE
     Indication: Gastritis
     Route: 065
     Dates: start: 2010
  14. ONDANSETRON [Concomitant]
     Active Substance: ONDANSETRON
     Indication: Nausea
     Dosage: 80 MG, QD
     Route: 065
     Dates: start: 202412
  15. VITAMIN D NOS [Concomitant]
     Active Substance: CHOLECALCIFEROL\ERGOCALCIFEROL
     Indication: Product used for unknown indication
     Route: 065

REACTIONS (11)
  - Decreased immune responsiveness [Recovered/Resolved]
  - Brain neoplasm [Unknown]
  - Cardiac neoplasm unspecified [Unknown]
  - Metastases to central nervous system [Recovered/Resolved]
  - Lymphadenitis [Unknown]
  - Thyroid neoplasm [Unknown]
  - Fatigue [Unknown]
  - Musculoskeletal discomfort [Unknown]
  - Drug resistance [Unknown]
  - Drug ineffective [Unknown]
  - Therapy partial responder [Unknown]

NARRATIVE: CASE EVENT DATE: 20250401
